FAERS Safety Report 19027922 (Version 3)
Quarter: 2021Q2

REPORT INFORMATION
  Report Type: Spontaneous
  Country: BE (occurrence: BE)
  Receive Date: 20210318
  Receipt Date: 20210406
  Transmission Date: 20210717
  Serious: Yes (Other)
  Sender: FDA-Public Use
  Company Number: BE-BIOGEN-2021BI00988150

PATIENT
  Age: 39 Year
  Sex: Female
  Weight: 49 kg

DRUGS (2)
  1. TYSABRI [Suspect]
     Active Substance: NATALIZUMAB
     Indication: MULTIPLE SCLEROSIS
     Dosage: 3 INFUSIONS
     Route: 065
     Dates: start: 20201215, end: 202102
  2. GILENYA [Suspect]
     Active Substance: FINGOLIMOD HYDROCHLORIDE
     Indication: MULTIPLE SCLEROSIS
     Route: 065
     Dates: start: 201707, end: 202009

REACTIONS (2)
  - Progressive multifocal leukoencephalopathy [Unknown]
  - Malaise [Unknown]

NARRATIVE: CASE EVENT DATE: 202012
